FAERS Safety Report 8490707-1 (Version None)
Quarter: 2012Q3

REPORT INFORMATION
  Report Type: 
  Country: None (occurrence: None)
  Receive Date: 20120706
  Receipt Date: 20120625
  Transmission Date: 20120928
  Serious: Yes (Other)
  Sender: FDA-Public Use
  Company Number: BR-AMGEN-BRASP2012040699

PATIENT
  Age: 53 Year
  Sex: Male
  Weight: 130 kg

DRUGS (3)
  1. NIMESULIDE [Concomitant]
     Dosage: UNK
  2. ENBREL [Suspect]
     Indication: RHEUMATOID ARTHRITIS
     Dosage: 50 MG, ONCE WEEKLY
     Route: 058
     Dates: start: 20120401, end: 20120601
  3. TYLEX                              /00116401/ [Concomitant]
     Dosage: UNK

REACTIONS (2)
  - ABASIA [None]
  - PAIN [None]
